FAERS Safety Report 24105501 (Version 1)
Quarter: 2024Q3

REPORT INFORMATION
  Report Type: Report from Study
  Country: US (occurrence: None)
  Receive Date: 20240717
  Receipt Date: 20240717
  Transmission Date: 20241017
  Serious: Yes (Other)
  Sender: ASTRAZENECA
  Company Number: 2024A157872

PATIENT
  Sex: Female

DRUGS (1)
  1. CALQUENCE [Suspect]
     Active Substance: ACALABRUTINIB
     Indication: Chronic lymphocytic leukaemia
     Route: 048

REACTIONS (7)
  - Thrombosis [Unknown]
  - Purpura [Unknown]
  - White blood cell count abnormal [Unknown]
  - Muscle spasms [Unknown]
  - Fear [Unknown]
  - Nasopharyngitis [Unknown]
  - Intentional dose omission [Unknown]
